FAERS Safety Report 23836095 (Version 3)
Quarter: 2024Q2

REPORT INFORMATION
  Report Type: Spontaneous
  Country: FR (occurrence: FR)
  Receive Date: 20240509
  Receipt Date: 20240620
  Transmission Date: 20240716
  Serious: Yes (Death, Other)
  Sender: FDA-Public Use
  Company Number: FR-CHEPLA-2024004304

PATIENT
  Age: 34 Year
  Sex: Male

DRUGS (12)
  1. TRAMADOL [Suspect]
     Active Substance: TRAMADOL\TRAMADOL HYDROCHLORIDE
     Indication: Product used for unknown indication
     Route: 065
  2. QUETIAPINE [Suspect]
     Active Substance: QUETIAPINE
     Indication: Product used for unknown indication
     Dosage: 1 TABLET AT NIGHT FOR ONE MONTH
     Route: 065
  3. QUETIAPINE [Suspect]
     Active Substance: QUETIAPINE
     Indication: Product used for unknown indication
     Dosage: 1 TABLET AT NIGHT FOR ONE MONTH
     Route: 065
  4. AMISULPRIDE [Suspect]
     Active Substance: AMISULPRIDE
     Indication: Schizophrenia
     Route: 065
  5. COCAINE [Suspect]
     Active Substance: COCAINE
     Indication: Product used for unknown indication
     Route: 065
  6. CODEINE [Suspect]
     Active Substance: CODEINE
     Indication: Product used for unknown indication
     Route: 065
  7. MIANSERIN [Suspect]
     Active Substance: MIANSERIN
     Indication: Depression
     Route: 065
  8. VALIUM [Suspect]
     Active Substance: DIAZEPAM
     Indication: Product used for unknown indication
     Route: 065
  9. CLOTIAZEPAM [Suspect]
     Active Substance: CLOTIAZEPAM
     Indication: Product used for unknown indication
     Dosage: 3 TABLETS PER DAY FOR A MONTH
     Route: 065
  10. FENTANYL [Suspect]
     Active Substance: FENTANYL\FENTANYL CITRATE
     Indication: Product used for unknown indication
     Route: 065
  11. ACETAMINOPHEN [Suspect]
     Active Substance: ACETAMINOPHEN
     Indication: Product used for unknown indication
     Route: 065
  12. SKENAN [Suspect]
     Active Substance: MORPHINE SULFATE
     Indication: Product used for unknown indication
     Route: 065

REACTIONS (16)
  - Myocarditis [Fatal]
  - Inflammation [Unknown]
  - Leukocytosis [Unknown]
  - Cardio-respiratory arrest [Fatal]
  - Hyperglycaemia [Fatal]
  - Hepatic cytolysis [Fatal]
  - Gallbladder injury [Fatal]
  - Hypersomnia [Unknown]
  - Synovitis [Unknown]
  - Confusional state [Unknown]
  - Cardiomyopathy [Fatal]
  - Coma [Fatal]
  - Somnolence [Unknown]
  - Toxicity to various agents [Fatal]
  - Stenosis [Fatal]
  - Monocytosis [Unknown]
